FAERS Safety Report 9301543 (Version 1)
Quarter: 2012Q4

REPORT INFORMATION
  Report Type: Spontaneous
  Country: US (occurrence: None)
  Receive Date: 20121121
  Receipt Date: 20121121
  Transmission Date: 20130627
  Serious: Yes (Death)
  Sender: FDA-Public Use
  Company Number: 2012SP003642

PATIENT
  Sex: Male
  Weight: 126.98 kg

DRUGS (31)
  1. FLUOROURACIL [Suspect]
     Indication: CANCER
     Route: 042
     Dates: start: 20120530, end: 20121031
  2. FLUOROURACIL [Suspect]
     Indication: METASTASIS
     Route: 042
     Dates: start: 20120530, end: 20121031
  3. IRINOTECAN [Suspect]
     Indication: COLORECTAL CANCER METASTATIC
     Route: 042
     Dates: start: 20120530, end: 20121031
  4. FOLINIC ACID [Suspect]
     Indication: COLORECTAL CANCER METASTATIC
     Route: 042
     Dates: start: 20120530, end: 20121031
  5. BLINDED THERAPY [Suspect]
     Indication: COLORECTAL CANCER METASTATIC
     Route: 042
  6. KLOR-CON [Concomitant]
  7. LASIX /00032602/ [Concomitant]
  8. NEXIUM /01479303/ [Concomitant]
  9. LEXAPRO [Concomitant]
  10. VESICARE [Concomitant]
  11. XANAX [Concomitant]
  12. MULTIVITAMINS [Concomitant]
  13. DIOVAN [Concomitant]
  14. VITAMIN [Concomitant]
  15. RESTORIL /00393701/ [Concomitant]
  16. CARDIZEM /00489702/ [Concomitant]
  17. LANTUS [Concomitant]
  18. PERCOCET /00867901/ [Concomitant]
  19. COMPAZINE /00013302/ [Concomitant]
  20. MAGNESIUM OXIDE [Concomitant]
  21. BENADRYL /00000402/ [Concomitant]
  22. ALLOPURINOL [Concomitant]
  23. COLCHICINE [Concomitant]
  24. PEPCID /00706001/ [Concomitant]
  25. OXISTAT [Concomitant]
  26. CLOCORTOLONE PIVALATE [Concomitant]
  27. DIFLUCAN [Concomitant]
  28. DEXAMETHASONE SODIUM PHOSPHATE [Concomitant]
  29. PALONOSETRON [Concomitant]
  30. ATROPINE [Concomitant]
  31. OXYCONTIN [Concomitant]

REACTIONS (9)
  - Platelet count decreased [None]
  - Blood sodium increased [None]
  - Blood magnesium decreased [None]
  - Rash [None]
  - Candidiasis [None]
  - Cardio-respiratory arrest [None]
  - Red blood cell count decreased [None]
  - Haemoglobin decreased [None]
  - Haematocrit decreased [None]
